FAERS Safety Report 7956392-X (Version None)
Quarter: 2011Q4

REPORT INFORMATION
  Report Type: 
  Country: None (occurrence: None)
  Receive Date: 20111205
  Receipt Date: 20111130
  Transmission Date: 20120403
  Serious: Yes (Other)
  Sender: FDA-Public Use
  Company Number: BR-PFIZER INC-2011292911

PATIENT
  Age: 47 Year
  Sex: Female

DRUGS (3)
  1. VARENICLINE TARTRATE [Suspect]
     Indication: SMOKING CESSATION THERAPY
     Dosage: UNK
     Route: 048
     Dates: start: 20111021, end: 20110101
  2. VARENICLINE TARTRATE [Suspect]
     Dosage: 1 MG, 2X/DAY
     Route: 048
     Dates: start: 20110101, end: 20110101
  3. FORMOTEROL FUMARATE [Concomitant]
     Indication: LUNG DISORDER
     Dosage: UNK
     Dates: start: 20110101, end: 20110101

REACTIONS (3)
  - FEELING ABNORMAL [None]
  - TOBACCO USER [None]
  - LUNG DISORDER [None]
